FAERS Safety Report 6026618-0 (Version None)
Quarter: 2008Q4

REPORT INFORMATION
  Report Type: 
  Country: None (occurrence: None)
  Receive Date: 20081231
  Receipt Date: 20081223
  Transmission Date: 20090506
  Serious: Yes (Life-Threatening, Hospitalization, Disabling)
  Sender: FDA-Public Use
  Company Number: 2008SP002930

PATIENT
  Age: 38 Year
  Sex: Male
  Weight: 100.6985 kg

DRUGS (1)
  1. LUNESTA [Suspect]
     Indication: GENERALISED ANXIETY DISORDER
     Dosage: 0.3 MG; TID; ORAL
     Route: 048
     Dates: start: 20080828, end: 20081028

REACTIONS (17)
  - AGITATION [None]
  - APHASIA [None]
  - CONDUCTIVE DEAFNESS [None]
  - CONFUSIONAL STATE [None]
  - CONTUSION [None]
  - DISORIENTATION [None]
  - EAR HAEMORRHAGE [None]
  - EAR PAIN [None]
  - HOSTILITY [None]
  - MEMORY IMPAIRMENT [None]
  - MENTAL DISORDER [None]
  - NYSTAGMUS [None]
  - RETROGRADE AMNESIA [None]
  - SKULL FRACTURE [None]
  - SUBARACHNOID HAEMORRHAGE [None]
  - SUICIDE ATTEMPT [None]
  - TRAUMATIC BRAIN INJURY [None]
